FAERS Safety Report 7586960-9 (Version None)
Quarter: 2011Q3

REPORT INFORMATION
  Report Type: 
  Country: None (occurrence: None)
  Receive Date: 20110701
  Receipt Date: 20110620
  Transmission Date: 20111222
  Serious: Yes (Other)
  Sender: FDA-Public Use
  Company Number: CA-JNJFOC-20110610575

PATIENT
  Sex: Female
  Weight: 69.85 kg

DRUGS (3)
  1. LEVOCARB [Concomitant]
     Dosage: 100/25 MG
     Route: 048
  2. REMICADE [Suspect]
     Indication: CROHN'S DISEASE
     Route: 042
     Dates: start: 20040101
  3. CELEBREX [Concomitant]
     Route: 048

REACTIONS (2)
  - HIP SURGERY [None]
  - BACK PAIN [None]
